FAERS Safety Report 5368572-0 (Version None)
Quarter: 2007Q2

REPORT INFORMATION
  Report Type: 
  Country: None (occurrence: None)
  Receive Date: 20070625
  Receipt Date: 20070620
  Transmission Date: 20071010
  Serious: Yes (Other)
  Sender: FDA-Public Use
  Company Number: JP-AVENTIS-200711618JP

PATIENT
  Age: 61 Year
  Sex: Male

DRUGS (3)
  1. AMARYL [Suspect]
     Dosage: DOSE: UNK
     Route: 048
     Dates: end: 20070613
  2. GLIMICRON [Concomitant]
     Route: 048
  3. GLIMICRON [Concomitant]
     Route: 048

REACTIONS (1)
  - BLOOD CREATINE PHOSPHOKINASE INCREASED [None]
